FAERS Safety Report 8624045-0 (Version None)
Quarter: 2012Q3

REPORT INFORMATION
  Report Type: 
  Country: None (occurrence: None)
  Receive Date: 20120827
  Receipt Date: 20120817
  Transmission Date: 20120928
  Serious: Yes (Hospitalization, Other)
  Sender: FDA-Public Use
  Company Number: JP-ASTRAZENECA-2012SE42557

PATIENT
  Age: 57 Year
  Sex: Female

DRUGS (5)
  1. ADALAT [Concomitant]
     Dosage: DOSE UNKNOWN
     Route: 065
     Dates: start: 20100101, end: 20120613
  2. GLIMICRON [Concomitant]
     Dosage: DOSE UNKNOWN
     Route: 065
     Dates: start: 20100101, end: 20120613
  3. CRESTOR [Suspect]
     Route: 048
     Dates: start: 20120426, end: 20120520
  4. CRESTOR [Suspect]
     Indication: HYPERLIPIDAEMIA
     Dosage: DOSE UNKNOWN
     Route: 048
     Dates: start: 20110317, end: 20110616
  5. AMARYL [Concomitant]
     Dosage: DOSE UNKNOWN
     Route: 065
     Dates: start: 20100101, end: 20120613

REACTIONS (2)
  - BLOOD CREATINE PHOSPHOKINASE INCREASED [None]
  - HYPOTHYROIDISM [None]
